FAERS Safety Report 6243031-1 (Version None)
Quarter: 2009Q2

REPORT INFORMATION
  Report Type: 
  Country: None (occurrence: None)
  Receive Date: 20090624
  Receipt Date: 20090615
  Transmission Date: 20091009
  Serious: Yes (Hospitalization)
  Sender: FDA-Public Use
  Company Number: PL-BAYER-200922187GPV

PATIENT
  Age: 57 Year
  Sex: Male
  Weight: 60 kg

DRUGS (2)
  1. ACETYLSALICYLIC ACID [Suspect]
     Indication: CARDIOVASCULAR EVENT PROPHYLAXIS
     Route: 048
     Dates: start: 20090128, end: 20090527
  2. RANIGAST [Concomitant]
     Indication: PROPHYLAXIS
     Route: 048
     Dates: start: 20090414, end: 20090416

REACTIONS (3)
  - BONE PAIN [None]
  - GASTRIC ULCER PERFORATION [None]
  - PERITONITIS [None]
